FAERS Safety Report 15426821 (Version 1)
Quarter: 2018Q4

REPORT INFORMATION
  Report Type: Spontaneous
  Country: US (occurrence: US)
  Receive Date: 20180925
  Receipt Date: 20180925
  Transmission Date: 20190204
  Serious: No
  Sender: FDA-Public Use
  Company Number: US-INDIVIOR LIMITED-INDV-107368-2017

PATIENT
  Age: 57 Year
  Sex: Male

DRUGS (2)
  1. BUPRENORPHINE GENERIC INJECTION [Suspect]
     Active Substance: BUPRENORPHINE
     Indication: PAIN MANAGEMENT
     Dosage: 2MG, UNK
     Route: 042
     Dates: start: 20171207, end: 201712
  2. SUBOXONE [Suspect]
     Active Substance: BUPRENORPHINE HYDROCHLORIDE\NALOXONE HYDROCHLORIDE
     Indication: PAIN MANAGEMENT
     Dosage: HALF FILM, FOUR TO SIX TIMES A DAY
     Route: 060
     Dates: start: 20171209

REACTIONS (4)
  - Wrong technique in product usage process [Not Recovered/Not Resolved]
  - Vomiting [Recovered/Resolved]
  - Product use issue [Not Recovered/Not Resolved]
  - Off label use [Not Recovered/Not Resolved]

NARRATIVE: CASE EVENT DATE: 201712
